FAERS Safety Report 5800270-9 (Version None)
Quarter: 2008Q3

REPORT INFORMATION
  Report Type: 
  Country: None (occurrence: None)
  Receive Date: 20080703
  Receipt Date: 20080701
  Transmission Date: 20090109
  Serious: Yes (Death, Other)
  Sender: FDA-Public Use
  Company Number: PHNU2008DE01930

PATIENT
  Sex: Female

DRUGS (1)
  1. EXELON [Suspect]
     Indication: DEMENTIA
     Dosage: 4.6 MG/24 HR PATCH
     Route: 062
     Dates: start: 20080416, end: 20080519

REACTIONS (5)
  - CARDIAC FAILURE [None]
  - FALL [None]
  - NAUSEA [None]
  - RENAL FAILURE [None]
  - VOMITING [None]
